FAERS Safety Report 8310605-3 (Version None)
Quarter: 2012Q2

REPORT INFORMATION
  Report Type: 
  Country: None (occurrence: None)
  Receive Date: 20120425
  Receipt Date: 20120425
  Transmission Date: 20120825
  Serious: Yes (Other)
  Sender: FDA-Public Use
  Company Number: None

PATIENT
  Age: 54 Year
  Sex: Female
  Weight: 73.481 kg

DRUGS (1)
  1. CYMBALTA [Suspect]
     Indication: FIBROMYALGIA
     Dosage: 60.0 MG
     Route: 048
     Dates: start: 20110501, end: 20120201

REACTIONS (2)
  - ARRHYTHMIA [None]
  - PALPITATIONS [None]
